FAERS Safety Report 4598043-0 (Version None)
Quarter: 2005Q2

REPORT INFORMATION
  Report Type: 
  Country: None (occurrence: None)
  Receive Date: 20050207
  Receipt Date: 20040510
  Transmission Date: 20051028
  Serious: Yes (Hospitalization)
  Sender: FDA-Public Use
  Company Number: MEDI-0001773

PATIENT
  Age: 67 Year
  Sex: Male
  Weight: 77.1115 kg

DRUGS (7)
  1. ETHYOL [Suspect]
     Indication: CHEMOTHERAPY
     Dosage: SEE IMAGE
     Dates: start: 20040225, end: 20040226
  2. ETHYOL [Suspect]
     Indication: CHEMOTHERAPY
     Dosage: SEE IMAGE
     Dates: start: 20040228, end: 20040226
  3. TAXOL [Concomitant]
  4. CARBOPLATIN [Concomitant]
  5. 5-FU (FLOUROURACIL) [Concomitant]
  6. ADVAIR DISKUS (FLUTICASONE PROPIONATE, SALMETEROL XINAFOATE) [Concomitant]
  7. ZOFRAN [Concomitant]

REACTIONS (2)
  - CHEST PAIN [None]
  - NAUSEA [None]
